FAERS Safety Report 10048591 (Version 3)
Quarter: 2014Q2

REPORT INFORMATION
  Report Type: Report from Study
  Country: US (occurrence: US)
  Receive Date: 20140331
  Receipt Date: 20140421
  Transmission Date: 20141212
  Serious: Yes (Other)
  Sender: FDA-Public Use
  Company Number: US-OTSUKA-US-2014-10307

PATIENT
  Age: 45 Year
  Sex: Female

DRUGS (5)
  1. OPC-41061 [Suspect]
     Indication: CONGENITAL CYSTIC KIDNEY DISEASE
     Dosage: 90 MG MILLIGRAM(S), QD
     Route: 048
     Dates: start: 20110604, end: 20140210
  2. VITAMIN D [Concomitant]
     Indication: SUPPLEMENTATION THERAPY
     Dosage: 1000 IU, UNK
     Route: 048
     Dates: start: 20080414
  3. ALLEGRA [Concomitant]
     Indication: SEASONAL ALLERGY
     Dosage: 180 MG MILLIGRAM(S), UNK
     Route: 048
     Dates: start: 20100511
  4. ORTHO TRI-CYCLEN [Concomitant]
     Indication: CONTRACEPTION
     Dosage: 1 TAB, QD
     Route: 048
     Dates: start: 20111103
  5. ENALAPRIL MALEATE [Concomitant]
     Indication: HYPERTENSION
     Dosage: 10 MG MILLIGRAM(S), UNK
     Route: 048
     Dates: start: 20131128

REACTIONS (1)
  - Vertigo [Recovered/Resolved]
